FAERS Safety Report 9042373 (Version 1)
Quarter: 2013Q1

REPORT INFORMATION
  Report Type: Report from Study
  Country: US (occurrence: US)
  Receive Date: 20130129
  Receipt Date: 20130129
  Transmission Date: 20140127
  Serious: No
  Sender: FDA-Public Use
  Company Number: US-ABBOTT-12P-163-0906681-00

PATIENT
  Age: 55 Year
  Sex: Female

DRUGS (6)
  1. HUMIRA 40 MG/0.8 ML PEN [Suspect]
     Indication: RHEUMATOID ARTHRITIS
     Dates: start: 20110120
  2. NEURONTIN [Concomitant]
     Indication: BACK DISORDER
  3. METHOTREXATE [Concomitant]
     Indication: RHEUMATOID ARTHRITIS
     Dosage: 2.5 MG X 8 PILLS WEEKLY
  4. FOLIC ACID [Concomitant]
     Indication: VITAMIN SUPPLEMENTATION
     Dosage: 1 MG DIALY
  5. HYDROXYZINE [Concomitant]
     Indication: PRURITUS ALLERGIC
  6. FAMOTIDINE [Concomitant]
     Indication: GASTROOESOPHAGEAL REFLUX DISEASE

REACTIONS (3)
  - Nasal congestion [Not Recovered/Not Resolved]
  - Throat irritation [Not Recovered/Not Resolved]
  - Rhinorrhoea [Not Recovered/Not Resolved]
